FAERS Safety Report 7474723-4 (Version None)
Quarter: 2011Q2

REPORT INFORMATION
  Report Type: 
  Country: None (occurrence: None)
  Receive Date: 20110509
  Receipt Date: 20110509
  Transmission Date: 20111010
  Serious: No
  Sender: FDA-Public Use
  Company Number: None

PATIENT
  Age: 61 Year
  Sex: Female
  Weight: 122 kg

DRUGS (2)
  1. EMEND [Suspect]
     Indication: PROPHYLAXIS
     Dosage: 150 MG ONCE IV
     Route: 042
     Dates: start: 20110311, end: 20110311
  2. EMEND [Suspect]
     Indication: NAUSEA
     Dosage: 150 MG ONCE IV
     Route: 042
     Dates: start: 20110311, end: 20110311

REACTIONS (3)
  - DYSPNOEA [None]
  - BACK PAIN [None]
  - FLUSHING [None]
